FAERS Safety Report 24715983 (Version 2)
Quarter: 2024Q4

REPORT INFORMATION
  Report Type: Spontaneous
  Country: US (occurrence: US)
  Receive Date: 20241210
  Receipt Date: 20241223
  Transmission Date: 20250114
  Serious: Yes (Other)
  Sender: ALKEM
  Company Number: None

PATIENT
  Age: 45 Year
  Sex: Male

DRUGS (3)
  1. TACROLIMUS [Suspect]
     Active Substance: TACROLIMUS
     Indication: Immunosuppressant drug therapy
     Dosage: UNK
     Route: 065
  2. TACROLIMUS [Suspect]
     Active Substance: TACROLIMUS
     Dosage: UNK (DOSE DECREASED)
     Route: 065
  3. AMPHOTERICIN B [Suspect]
     Active Substance: AMPHOTERICIN B
     Indication: Metastases to meninges
     Dosage: UNK
     Route: 042

REACTIONS (5)
  - Immunosuppressant drug level increased [Unknown]
  - Acute kidney injury [Recovering/Resolving]
  - Disseminated blastomycosis [Unknown]
  - Pulmonary blastomycosis [Unknown]
  - Cutaneous blastomycosis [Unknown]
